FAERS Safety Report 7321061-6 (Version None)
Quarter: 2011Q1

REPORT INFORMATION
  Report Type: 
  Country: None (occurrence: None)
  Receive Date: 20110215
  Receipt Date: 20110201
  Transmission Date: 20110831
  Serious: Yes (Hospitalization)
  Sender: FDA-Public Use
  Company Number: AE 2011-034/MCN 015164

PATIENT
  Age: 36 Year
  Sex: Male

DRUGS (1)
  1. PRIALT [Suspect]
     Indication: SPINAL CORD INJURY
     Dosage: 0.04 - 0.37 UG HOURLY
     Dates: start: 20090914

REACTIONS (7)
  - CONFUSIONAL STATE [None]
  - HALLUCINATION [None]
  - INCOHERENT [None]
  - PROSTATITIS [None]
  - DECUBITUS ULCER [None]
  - FALL [None]
  - DIZZINESS [None]
